FAERS Safety Report 4756499-4 (Version None)
Quarter: 2005Q3

REPORT INFORMATION
  Report Type: 
  Country: None (occurrence: None)
  Receive Date: 20050830
  Receipt Date: 20050715
  Transmission Date: 20060218
  Serious: No
  Sender: FDA-Public Use
  Company Number: US-GLAXOSMITHKLINE-A0566442A

PATIENT
  Age: 45 Year
  Sex: Female

DRUGS (3)
  1. WELLBUTRIN XL [Suspect]
     Indication: DRUG USE FOR UNKNOWN INDICATION
     Dosage: 300MG PER DAY
     Route: 048
  2. ESTROVEN [Suspect]
     Dosage: 1CAP AT NIGHT
     Dates: start: 20050711, end: 20050713
  3. M.V.I. [Concomitant]

REACTIONS (1)
  - HEADACHE [None]
